FAERS Safety Report 13068359 (Version 1)
Quarter: 2016Q4

REPORT INFORMATION
  Report Type: Spontaneous
  Country: US (occurrence: US)
  Receive Date: 20161227
  Receipt Date: 20161227
  Transmission Date: 20170207
  Serious: Yes (Other)
  Sender: FDA-Public Use
  Company Number: None

PATIENT
  Age: 7 Month
  Sex: Male

DRUGS (1)
  1. SODIUM CHLORIDE IRRIGATION BRAUN [Suspect]
     Active Substance: SODIUM CHLORIDE
     Indication: NASOPHARYNGITIS
     Route: 055
     Dates: start: 20161223, end: 20161226

REACTIONS (2)
  - Wrong drug administered [None]
  - Drug dispensing error [None]

NARRATIVE: CASE EVENT DATE: 20161223
